FAERS Safety Report 10614860 (Version 3)
Quarter: 2015Q2

REPORT INFORMATION
  Report Type: Spontaneous
  Country: SE (occurrence: SE)
  Receive Date: 20141201
  Receipt Date: 20150504
  Transmission Date: 20150821
  Serious: Yes (Other)
  Sender: FDA-Public Use
  Company Number: SE-ROCHE-1495743

PATIENT
  Sex: Female

DRUGS (1)
  1. MABTHERA [Suspect]
     Active Substance: RITUXIMAB
     Indication: PANCREATITIS
     Dosage: IN TWO SEPARATE OCCASIONS IN FEB 2014, SHE RECEIVED RITUXIMAB.
     Route: 065
     Dates: end: 201402

REACTIONS (8)
  - Myalgia [Unknown]
  - Off label use [Unknown]
  - Nasal disorder [Recovering/Resolving]
  - Visual impairment [Recovering/Resolving]
  - Tooth loss [Unknown]
  - Tendon rupture [Unknown]
  - Gingival bleeding [Recovering/Resolving]
  - Urinary tract infection [Unknown]

NARRATIVE: CASE EVENT DATE: 2014
